FAERS Safety Report 5731169-4 (Version None)
Quarter: 2008Q2

REPORT INFORMATION
  Report Type: 
  Country: None (occurrence: None)
  Receive Date: 20080507
  Receipt Date: 20080501
  Transmission Date: 20081010
  Serious: Yes (Other)
  Sender: FDA-Public Use
  Company Number: US-BOEHRINGER INGELHEIM GMBH, GERMANY-2008-BP-06909RO

PATIENT
  Age: 57 Year
  Sex: Male

DRUGS (3)
  1. TERBINAFINE HCL [Suspect]
     Indication: ONYCHOMYCOSIS
     Route: 048
  2. PREDNISONE TAB [Concomitant]
     Indication: DERMATOMYOSITIS
     Route: 048
  3. IMMUNE GLOBULIN INTRAVENOUS (HUMAN) [Concomitant]
     Indication: DERMATOMYOSITIS
     Route: 042

REACTIONS (1)
  - DERMATOMYOSITIS [None]
